FAERS Safety Report 23654111 (Version 1)
Quarter: 2024Q1

REPORT INFORMATION
  Report Type: Spontaneous
  Country: FR (occurrence: None)
  Receive Date: 20240320
  Receipt Date: 20240320
  Transmission Date: 20240410
  Serious: Yes (Disabling)
  Sender: FDA-Public Use
  Company Number: 2024A060254

PATIENT
  Age: 65 Year
  Sex: Male

DRUGS (5)
  1. DAPAGLIFLOZIN [Suspect]
     Active Substance: DAPAGLIFLOZIN
     Indication: Cardiac failure
     Route: 048
     Dates: start: 202301, end: 202309
  2. OZEMPIC [Concomitant]
     Active Substance: SEMAGLUTIDE
  3. ATORVASTATIN [Concomitant]
     Active Substance: ATORVASTATIN
  4. KARDEGIC [Concomitant]
     Active Substance: ASPIRIN DL-LYSINE
  5. COVERAM [Concomitant]
     Active Substance: AMLODIPINE\PERINDOPRIL

REACTIONS (1)
  - Extremity necrosis [Recovered/Resolved with Sequelae]

NARRATIVE: CASE EVENT DATE: 20230601
